FAERS Safety Report 9575470 (Version 1)
Quarter: 2013Q4

REPORT INFORMATION
  Report Type: Spontaneous
  Country: US (occurrence: US)
  Receive Date: 20131001
  Receipt Date: 20131001
  Transmission Date: 20140711
  Serious: Yes (Other)
  Sender: FDA-Public Use
  Company Number: US-AMGEN-USASP2012083153

PATIENT
  Age: 59 Year
  Sex: Female
  Weight: 89.34 kg

DRUGS (7)
  1. ENBREL [Suspect]
     Indication: RHEUMATOID ARTHRITIS
     Dosage: 50 MG, QWK
     Route: 058
  2. METHOTREXATE [Concomitant]
     Dosage: 2.5 MG, UNK
  3. CELEBREX [Concomitant]
     Dosage: 50 MG, UNK
  4. METFORMIN [Concomitant]
     Dosage: 500 MG, UNK
  5. FOLIC ACID [Concomitant]
     Dosage: 1 MG, UNK
  6. ATENOLOL [Concomitant]
     Dosage: 25 MG, UNK
  7. LOSARTAN POTASSIUM [Concomitant]
     Dosage: 100 MG, UNK

REACTIONS (2)
  - Uveitis [Unknown]
  - Cataract [Unknown]
